FAERS Safety Report 9236764 (Version 2)
Quarter: 2013Q2

REPORT INFORMATION
  Report Type: Report from Study
  Country: IL (occurrence: IL)
  Receive Date: 20130417
  Receipt Date: 20130424
  Transmission Date: 20140414
  Serious: Yes (Hospitalization)
  Sender: FDA-Public Use
  Company Number: IL-ROCHE-1211069

PATIENT
  Age: 42 Year
  Sex: Female
  Weight: 60 kg

DRUGS (4)
  1. TOCILIZUMAB [Suspect]
     Indication: RHEUMATOID ARTHRITIS
     Dosage: LAST DOSE PRIOR TO SAE- 06/MAR/2013
     Route: 042
     Dates: start: 20120517
  2. PLAQUENIL [Concomitant]
     Route: 065
  3. PREDNISONE [Concomitant]
     Route: 065
  4. SLOW FE [Concomitant]
     Route: 065

REACTIONS (1)
  - Pericardial effusion [Unknown]
